FAERS Safety Report 6117347-3 (Version None)
Quarter: 2009Q1

REPORT INFORMATION
  Report Type: 
  Country: None (occurrence: None)
  Receive Date: 20090314
  Receipt Date: 20090115
  Transmission Date: 20090719
  Serious: No
  Sender: FDA-Public Use
  Company Number: US-ABBOTT-09P-163-0498067-00

PATIENT
  Sex: Female
  Weight: 77.18 kg

DRUGS (1)
  1. HUMIRA [Suspect]
     Indication: RHEUMATOID ARTHRITIS
     Dates: start: 20090106

REACTIONS (5)
  - FATIGUE [None]
  - FLATULENCE [None]
  - NASOPHARYNGITIS [None]
  - NAUSEA [None]
  - RESPIRATORY TRACT CONGESTION [None]
